FAERS Safety Report 20079969 (Version 1)
Quarter: 2021Q4

REPORT INFORMATION
  Report Type: Spontaneous
  Country: DE (occurrence: DE)
  Receive Date: 20211117
  Receipt Date: 20211117
  Transmission Date: 20220303
  Serious: Yes (Other)
  Sender: FDA-Public Use
  Company Number: DE-NOVARTISPH-NVSC2021DE240559

PATIENT
  Age: 52 Year
  Sex: Male
  Weight: 102 kg

DRUGS (6)
  1. PREDNISONE [Suspect]
     Active Substance: PREDNISONE
     Indication: Osteoarthritis
     Dosage: UNK
     Route: 065
     Dates: start: 202101
  2. DEXAMETHASONE [Suspect]
     Active Substance: DEXAMETHASONE
     Indication: Arthralgia
     Dosage: 3 DF (FIRST DAY)
     Route: 065
     Dates: start: 202101, end: 2021
  3. DEXAMETHASONE [Suspect]
     Active Substance: DEXAMETHASONE
     Indication: Back pain
     Dosage: 2 DF (SECOND DAY)
     Route: 065
     Dates: start: 2021, end: 2021
  4. DEXAMETHASONE [Suspect]
     Active Substance: DEXAMETHASONE
     Indication: Osteoarthritis
     Dosage: 1 DF (THIRD DAY)
     Route: 065
     Dates: start: 2021, end: 2021
  5. DEXAMETHASONE [Suspect]
     Active Substance: DEXAMETHASONE
     Dosage: 0.5 DF (FOURTH DAY)
     Route: 065
     Dates: start: 2021, end: 2021
  6. DEXAMETHASONE [Suspect]
     Active Substance: DEXAMETHASONE
     Dosage: RE-STARTED (DECREASING DOSE)
     Route: 065
     Dates: start: 2021

REACTIONS (2)
  - Chorioretinopathy [Recovered/Resolved]
  - Polymyalgia rheumatica [Unknown]

NARRATIVE: CASE EVENT DATE: 20210101
